FAERS Safety Report 25962859 (Version 1)
Quarter: 2025Q4

REPORT INFORMATION
  Report Type: Spontaneous
  Country: US (occurrence: None)
  Receive Date: 20251025
  Receipt Date: 20251025
  Transmission Date: 20260117
  Serious: Yes (Life-Threatening, Disabling)
  Sender: FDA-CTU
  Company Number: None

PATIENT
  Age: 24 Year
  Sex: Male
  Weight: 90 kg

DRUGS (2)
  1. VENLAFAXINE HYDROCHLORIDE [Suspect]
     Active Substance: VENLAFAXINE HYDROCHLORIDE
     Indication: Depression
     Dosage: OTHER QUANTITY : 1 CAPSULE(S);?FREQUENCY : DAILY;?
     Route: 048
  2. VENLAFAXINE HYDROCHLORIDE [Suspect]
     Active Substance: VENLAFAXINE HYDROCHLORIDE
     Indication: Social anxiety disorder

REACTIONS (14)
  - Fatigue [None]
  - Muscle twitching [None]
  - Withdrawal syndrome [None]
  - Brain injury [None]
  - Cognitive disorder [None]
  - Bradyphrenia [None]
  - Decreased activity [None]
  - Confusional state [None]
  - Memory impairment [None]
  - Speech disorder [None]
  - Communication disorder [None]
  - Emotional disorder [None]
  - Quality of life decreased [None]
  - Educational problem [None]

NARRATIVE: CASE EVENT DATE: 20171027
